FAERS Safety Report 15337331 (Version 1)
Quarter: 2018Q3

REPORT INFORMATION
  Report Type: Report from Study
  Country: PL (occurrence: PL)
  Receive Date: 20180831
  Receipt Date: 20180831
  Transmission Date: 20181010
  Serious: Yes (Hospitalization)
  Sender: FDA-Public Use
  Company Number: PL-ROCHE-2175741

PATIENT
  Age: 74 Year
  Sex: Female
  Weight: 64 kg

DRUGS (6)
  1. BISOCARD [Concomitant]
     Active Substance: BISOPROLOL
     Route: 048
  2. LOTENSIN (POLAND) [Concomitant]
     Route: 048
  3. ANESTELOC [Concomitant]
     Active Substance: PANTOPRAZOLE SODIUM
     Route: 048
  4. ATEZOLIZUMAB. [Suspect]
     Active Substance: ATEZOLIZUMAB
     Indication: NON-SMALL CELL LUNG CANCER
     Dosage: MOST RECENT DOSE PRIOR TO EVENT ONSET : 23/AUG/2018
     Route: 042
     Dates: start: 20180802
  5. BIOTROPIL [Concomitant]
     Route: 048
  6. VICEBROL [Concomitant]
     Active Substance: VINPOCETINE
     Route: 048

REACTIONS (2)
  - Hypertension [Recovered/Resolved]
  - Chills [Recovered/Resolved]

NARRATIVE: CASE EVENT DATE: 20180823
